FAERS Safety Report 5699219-1 (Version None)
Quarter: 2008Q2

REPORT INFORMATION
  Report Type: 
  Country: None (occurrence: None)
  Receive Date: 20080408
  Receipt Date: 20080402
  Transmission Date: 20081010
  Serious: Yes (Hospitalization)
  Sender: FDA-Public Use
  Company Number: APP200800245

PATIENT
  Age: 74 Year
  Sex: Female
  Weight: 92.5792 kg

DRUGS (4)
  1. HEPARIN SODIUM INJECTION [Suspect]
     Indication: ANTICOAGULANT THERAPY
     Dosage: 1000 USP UNITS, ONCE, INTRAVENOUS BOLUS
     Route: 042
     Dates: start: 20080328, end: 20080328
  2. IODINE CONTRAST MEDIA (CONTRAST MEDIA) [Suspect]
     Indication: CARDIAC VENTRICULOGRAM LEFT
     Dosage: 9 INJECTIONS (5-9 ML) IN 1 MINUTE INTERV, INTRAVENOUS : 33 ML, INTRAVENOUS
     Route: 042
     Dates: start: 20080328, end: 20080328
  3. IODINE CONTRAST MEDIA (CONTRAST MEDIA) [Suspect]
     Indication: CARDIAC VENTRICULOGRAM LEFT
     Dosage: 9 INJECTIONS (5-9 ML) IN 1 MINUTE INTERV, INTRAVENOUS : 33 ML, INTRAVENOUS
     Route: 042
     Dates: start: 20080328, end: 20080328
  4. BENADRYL (DIPHENYDRAMINDE HYDROCHLORIDE) [Concomitant]

REACTIONS (3)
  - ANGIOEDEMA [None]
  - BLOOD PRESSURE DECREASED [None]
  - LARYNGEAL OEDEMA [None]
